FAERS Safety Report 9848631 (Version 2)
Quarter: 2014Q1

REPORT INFORMATION
  Report Type: Spontaneous
  Country: JP (occurrence: JP)
  Receive Date: 20140128
  Receipt Date: 20140203
  Transmission Date: 20141002
  Serious: No
  Sender: FDA-Public Use
  Company Number: JP-AMGEN-JPNSP2014006009

PATIENT
  Age: 7 Decade
  Sex: Female

DRUGS (1)
  1. PRALIA [Suspect]
     Indication: OSTEOPOROSIS
     Dosage: UNKNOWN
     Route: 058

REACTIONS (1)
  - Loss of consciousness [Recovering/Resolving]
